FAERS Safety Report 15842600 (Version 1)
Quarter: 2019Q1

REPORT INFORMATION
  Report Type: Spontaneous
  Country: DE (occurrence: DE)
  Receive Date: 20190118
  Receipt Date: 20190118
  Transmission Date: 20190417
  Serious: Yes (Hospitalization)
  Sender: FDA-Public Use
  Company Number: DE-TEVA-2019-DE-998699

PATIENT
  Age: 66 Year
  Sex: Female
  Weight: 78 kg

DRUGS (13)
  1. MIGRAENE-KRANIT [Concomitant]
     Route: 048
     Dates: start: 1997
  2. BELOC ZOK [Concomitant]
     Active Substance: METOPROLOL SUCCINATE
     Route: 048
  3. HCT ISIS 25 [Concomitant]
     Dosage: 13 MILLIGRAM DAILY;
     Route: 048
     Dates: start: 2001, end: 2003
  4. ASPIRIN. [Concomitant]
     Active Substance: ASPIRIN
     Route: 065
  5. TANATRIL 20 MG [Concomitant]
     Dosage: 20 MILLIGRAM DAILY;
     Route: 048
     Dates: start: 2001, end: 2003
  6. ESIDREX [Concomitant]
     Active Substance: HYDROCHLOROTHIAZIDE
     Route: 065
  7. DICLO 50 [Concomitant]
     Route: 048
     Dates: start: 1997, end: 2002
  8. METO-ISIS 200MG RETARD [Concomitant]
     Dosage: 200 MILLIGRAM DAILY;
     Route: 048
     Dates: start: 2001, end: 2003
  9. ASS 300 [Concomitant]
     Dosage: 150 MILLIGRAM DAILY;
     Route: 048
     Dates: start: 1993, end: 2003
  10. BROMAZANIL [Concomitant]
     Active Substance: BROMAZEPAM
     Route: 048
     Dates: start: 1997, end: 20030207
  11. KENDURAL [Concomitant]
     Dosage: 1 DOSAGE FORMS DAILY;
     Route: 048
     Dates: start: 20021223, end: 20030202
  12. DICLOFENAC [Suspect]
     Active Substance: DICLOFENAC
     Indication: PAIN IN EXTREMITY
     Dates: start: 20030126
  13. ROCEPHIN [Concomitant]
     Active Substance: CEFTRIAXONE SODIUM
     Route: 065
     Dates: start: 20030126, end: 20030129

REACTIONS (2)
  - Drug specific antibody present [Unknown]
  - Haemolytic anaemia [Recovering/Resolving]
